FAERS Safety Report 5213033-2 (Version None)
Quarter: 2007Q1

REPORT INFORMATION
  Report Type: 
  Country: None (occurrence: None)
  Receive Date: 20070117
  Receipt Date: 20070109
  Transmission Date: 20070707
  Serious: Yes (Death)
  Sender: FDA-Public Use
  Company Number: L07-USA-00079-02

PATIENT
  Age: 65 Year
  Sex: Male

DRUGS (12)
  1. CITALOPRAM HYDROBROMIDE [Suspect]
  2. PAROXETINE HCL [Suspect]
  3. MIRTAZAPINE [Suspect]
  4. ATENOLOL [Suspect]
  5. LISINOPRIL [Suspect]
  6. ZOLPIDEM TARTRATE [Suspect]
  7. AZITHROMYCIN [Suspect]
  8. TRAZODONE HCL [Suspect]
  9. LORAZEPAM [Suspect]
  10. ALPRAZOLAM [Suspect]
  11. ETHANOL [Suspect]
  12. 7-AMINOCLONAZEPAM [Suspect]

REACTIONS (5)
  - HEPATIC STEATOSIS [None]
  - HYPERTENSION [None]
  - LABORATORY TEST ABNORMAL [None]
  - OEDEMA [None]
  - PULMONARY CONGESTION [None]
